FAERS Safety Report 4570776-1 (Version None)
Quarter: 2005Q1

REPORT INFORMATION
  Report Type: 
  Country: None (occurrence: None)
  Receive Date: 20050202
  Receipt Date: 20050120
  Transmission Date: 20050727
  Serious: No
  Sender: FDA-Public Use
  Company Number: 2005-00090

PATIENT
  Age: 65 Year
  Sex: Male
  Weight: 80 kg

DRUGS (1)
  1. VELCADE [Suspect]
     Indication: MULTIPLE MYELOMA
     Dosage: 2.52 MG, INTRAVENOUS
     Route: 042
     Dates: start: 20050111, end: 20050101

REACTIONS (2)
  - THROMBOCYTOPENIA [None]
  - THROMBOPHLEBITIS [None]
